FAERS Safety Report 6342737-3 (Version None)
Quarter: 2009Q3

REPORT INFORMATION
  Report Type: 
  Country: None (occurrence: None)
  Receive Date: 20090908
  Receipt Date: 20090903
  Transmission Date: 20100115
  Serious: Yes (Hospitalization, Other)
  Sender: FDA-Public Use
  Company Number: GT-JNJFOC-20090902020

PATIENT
  Sex: Male

DRUGS (1)
  1. ELEQUINE [Suspect]
     Indication: DRUG USE FOR UNKNOWN INDICATION
     Route: 048

REACTIONS (1)
  - VENTRICULAR EXTRASYSTOLES [None]
